FAERS Safety Report 7769596-6 (Version None)
Quarter: 2011Q3

REPORT INFORMATION
  Report Type: 
  Country: None (occurrence: None)
  Receive Date: 20110922
  Receipt Date: 20110513
  Transmission Date: 20111222
  Serious: No
  Sender: FDA-Public Use
  Company Number: US-ASTRAZENECA-2011SE24727

PATIENT
  Age: 64 Year
  Sex: Female
  Weight: 75.7 kg

DRUGS (14)
  1. SEROQUEL [Suspect]
     Route: 048
     Dates: start: 20110301, end: 20110401
  2. SEROQUEL [Suspect]
     Indication: ANXIETY
     Route: 048
     Dates: start: 20060101, end: 20110301
  3. SEROQUEL [Suspect]
     Route: 048
     Dates: start: 20110301, end: 20110401
  4. SEROQUEL [Suspect]
     Route: 048
  5. LISINOPRIL [Suspect]
     Route: 048
  6. SEROQUEL [Suspect]
     Route: 048
  7. SEROQUEL [Suspect]
     Route: 048
  8. SEROQUEL [Suspect]
     Indication: DEPRESSION
     Route: 048
     Dates: start: 20060101, end: 20110301
  9. KLONOPIN [Concomitant]
  10. GLIMEPIRIDE [Concomitant]
  11. EFFEXOR [Concomitant]
  12. PRILOSEC [Concomitant]
  13. SEROQUEL [Suspect]
     Indication: BIPOLAR DISORDER
     Route: 048
     Dates: start: 20060101, end: 20110301
  14. SEROQUEL [Suspect]
     Route: 048
     Dates: start: 20110301, end: 20110401

REACTIONS (11)
  - DECREASED INTEREST [None]
  - WEIGHT DECREASED [None]
  - DRUG DOSE OMISSION [None]
  - INCORRECT DOSE ADMINISTERED [None]
  - DIABETES MELLITUS [None]
  - WEIGHT INCREASED [None]
  - HEADACHE [None]
  - HYPERSENSITIVITY [None]
  - WRONG TECHNIQUE IN DRUG USAGE PROCESS [None]
  - FATIGUE [None]
  - CONFUSIONAL STATE [None]
